FAERS Safety Report 9537606 (Version 2)
Quarter: 2013Q4

REPORT INFORMATION
  Report Type: Spontaneous
  Country: US (occurrence: US)
  Receive Date: 20130919
  Receipt Date: 20131001
  Transmission Date: 20140711
  Serious: Yes (Other)
  Sender: FDA-Public Use
  Company Number: US-PFIZER INC-2013269309

PATIENT
  Age: 41 Year
  Sex: Female
  Weight: 70.3 kg

DRUGS (3)
  1. LYRICA [Suspect]
     Indication: FIBROMYALGIA
     Dosage: 150 MG, 3X/DAY
     Route: 048
     Dates: start: 2008, end: 201110
  2. XANAX [Concomitant]
     Indication: ANXIETY
     Dosage: UNK
  3. METHADONE [Concomitant]
     Indication: PAIN
     Dosage: UNK

REACTIONS (2)
  - Drug dependence [Unknown]
  - Bedridden [Unknown]
